FAERS Safety Report 9164498 (Version 2)
Quarter: 2013Q1

REPORT INFORMATION
  Report Type: Spontaneous
  Country: CA (occurrence: CA)
  Receive Date: 20130315
  Receipt Date: 20130320
  Transmission Date: 20140127
  Serious: Yes (Other)
  Sender: FDA-Public Use
  Company Number: PHHY2013CA021588

PATIENT
  Age: 54 Year
  Sex: Female

DRUGS (4)
  1. ACLASTA [Suspect]
     Indication: OSTEOPOROSIS
     Dosage: 5 MG/100ML
     Route: 042
     Dates: start: 20130226
  2. METHOTREXATE [Concomitant]
     Dosage: UNK UKN, UNK
  3. PAXIL [Concomitant]
     Dosage: 30 MG, QD
  4. CLONIDINE [Concomitant]
     Dosage: 12.5 MG, UNK

REACTIONS (7)
  - Iridocyclitis [Recovering/Resolving]
  - Conjunctival hyperaemia [Unknown]
  - Ocular hyperaemia [Unknown]
  - Eye inflammation [Unknown]
  - Eye pain [Unknown]
  - Bone pain [Unknown]
  - Myalgia [Unknown]
